FAERS Safety Report 24226073 (Version 1)
Quarter: 2024Q3

REPORT INFORMATION
  Report Type: Report from Study
  Country: US (occurrence: US)
  Receive Date: 20240820
  Receipt Date: 20240820
  Transmission Date: 20241017
  Serious: No
  Sender: ROCHE
  Company Number: US-ROCHE-10000005953

PATIENT
  Age: 74 Year
  Sex: Female

DRUGS (12)
  1. OCREVUS [Suspect]
     Active Substance: OCRELIZUMAB
     Indication: Relapsing multiple sclerosis
     Dosage: MORE DOSAGE INFORMATION IS 300 MG SINGLE-USE VIAL
     Route: 042
     Dates: start: 20200206, end: 20210512
  2. RITUXIMAB [Suspect]
     Active Substance: RITUXIMAB
     Indication: Product used for unknown indication
     Route: 065
  3. GABAPENTIN [Concomitant]
     Active Substance: GABAPENTIN
  4. AMPYRA [Concomitant]
     Active Substance: DALFAMPRIDINE
  5. SPIRONOLACTONE [Concomitant]
     Active Substance: SPIRONOLACTONE
  6. CALCIUM [Concomitant]
     Active Substance: CALCIUM
  7. LEVOTHYROXINE SODIUM [Concomitant]
     Active Substance: LEVOTHYROXINE SODIUM
  8. VITAMIN B12 [Concomitant]
     Active Substance: CYANOCOBALAMIN
  9. CARVEDILOL [Concomitant]
     Active Substance: CARVEDILOL
  10. ELIQUIS [Concomitant]
     Active Substance: APIXABAN
  11. DALFAMPRIDINE [Concomitant]
     Active Substance: DALFAMPRIDINE
  12. AMIODARONE [Concomitant]
     Active Substance: AMIODARONE

REACTIONS (18)
  - COVID-19 [Unknown]
  - Pneumonia [Unknown]
  - Heart rate irregular [Unknown]
  - Constipation [Unknown]
  - Back pain [Unknown]
  - Myalgia [Unknown]
  - Sleep disorder [Unknown]
  - Chest discomfort [Unknown]
  - Dyspnoea [Unknown]
  - Muscle spasms [Unknown]
  - Diarrhoea [Unknown]
  - Vomiting [Unknown]
  - Hypotension [Unknown]
  - Chills [Unknown]
  - Urticaria [Unknown]
  - Pruritus [Unknown]
  - Face oedema [Unknown]
  - Dizziness [Unknown]
